FAERS Safety Report 9909611 (Version 1)
Quarter: 2014Q1

REPORT INFORMATION
  Report Type: Spontaneous
  Country: US (occurrence: US)
  Receive Date: 20140219
  Receipt Date: 20140219
  Transmission Date: 20141002
  Serious: No
  Sender: FDA-Public Use
  Company Number: US-BAYER-2014-020428

PATIENT
  Age: 35 Year
  Sex: Female

DRUGS (1)
  1. GADAVIST [Suspect]
     Dosage: 10 ML, ONCE
     Dates: start: 20131231, end: 20131231

REACTIONS (1)
  - Nausea [Recovered/Resolved]
